FAERS Safety Report 7468680-4 (Version None)
Quarter: 2011Q2

REPORT INFORMATION
  Report Type: 
  Country: None (occurrence: None)
  Receive Date: 20110510
  Receipt Date: 20110429
  Transmission Date: 20111010
  Serious: Yes (Hospitalization)
  Sender: FDA-Public Use
  Company Number: US-BIOGENIDEC-2009BI032353

PATIENT
  Age: 48 Year
  Sex: Female
  Weight: 85 kg

DRUGS (4)
  1. ZONAGREN [Concomitant]
     Indication: MIGRAINE
  2. TYSABRI [Suspect]
     Route: 042
     Dates: start: 20050221, end: 20050221
  3. TYSABRI [Suspect]
     Route: 042
     Dates: start: 20060828, end: 20070717
  4. TYSABRI [Suspect]
     Indication: MULTIPLE SCLEROSIS
     Route: 042
     Dates: start: 20080130

REACTIONS (14)
  - MOBILITY DECREASED [None]
  - PAIN [None]
  - MALAISE [None]
  - PAIN IN EXTREMITY [None]
  - INTERVERTEBRAL DISC DISORDER [None]
  - MENISCUS LESION [None]
  - INCONTINENCE [None]
  - URINARY TRACT INFECTION [None]
  - ABDOMINAL PAIN UPPER [None]
  - BURSITIS [None]
  - MUSCLE SPASMS [None]
  - MULTIPLE SCLEROSIS RELAPSE [None]
  - LOSS OF CONTROL OF LEGS [None]
  - PERONEAL NERVE PALSY [None]
